FAERS Safety Report 5123742-1 (Version None)
Quarter: 2006Q4

REPORT INFORMATION
  Report Type: 
  Country: None (occurrence: None)
  Receive Date: 20061010
  Receipt Date: 20051227
  Transmission Date: 20070319
  Serious: Yes (Hospitalization)
  Sender: FDA-Public Use
  Company Number: US-ROCHE-430199

PATIENT
  Age: 16 Year
  Sex: Female
  Weight: 149 kg

DRUGS (2)
  1. ACCUTANE [Suspect]
     Indication: ACNE
     Route: 048
     Dates: start: 19821215, end: 19830615
  2. LORAZEPAM [Concomitant]
     Dates: start: 20000315, end: 20000315

REACTIONS (44)
  - ALANINE AMINOTRANSFERASE INCREASED [None]
  - ANAEMIA [None]
  - ANXIETY [None]
  - ARTERIOVENOUS FISTULA [None]
  - ARTHRALGIA [None]
  - ASPARTATE AMINOTRANSFERASE INCREASED [None]
  - BACK INJURY [None]
  - BLOOD THYROID STIMULATING HORMONE INCREASED [None]
  - BRONCHITIS ACUTE [None]
  - CHEST PAIN [None]
  - COLONIC POLYP [None]
  - CROHN'S DISEASE [None]
  - DEPRESSION [None]
  - ELECTROCARDIOGRAM Q WAVE ABNORMAL [None]
  - EMOTIONAL DISTRESS [None]
  - FATIGUE [None]
  - FEMALE GENITAL TRACT FISTULA [None]
  - GASTROOESOPHAGEAL REFLUX DISEASE [None]
  - HAEMORRHAGIC OVARIAN CYST [None]
  - HERPES SIMPLEX [None]
  - IMPAIRED WORK ABILITY [None]
  - INFLAMMATORY BOWEL DISEASE [None]
  - INJURY [None]
  - INTESTINAL OBSTRUCTION [None]
  - JOINT EFFUSION [None]
  - MITRAL VALVE INCOMPETENCE [None]
  - NASAL CONGESTION [None]
  - NASOPHARYNGITIS [None]
  - OESOPHAGEAL DISORDER [None]
  - OVERDOSE [None]
  - PNEUMONIA [None]
  - PNEUMONITIS [None]
  - PNEUMOPERITONEUM [None]
  - POST PROCEDURAL COMPLICATION [None]
  - PREGNANCY [None]
  - ROAD TRAFFIC ACCIDENT [None]
  - SINUS TACHYCARDIA [None]
  - SINUSITIS [None]
  - SUICIDE ATTEMPT [None]
  - URINARY TRACT INFECTION [None]
  - UTERINE LEIOMYOMA [None]
  - VAGINAL HAEMORRHAGE [None]
  - WEIGHT DECREASED [None]
  - WOUND [None]
